FAERS Safety Report 7671255-5 (Version None)
Quarter: 2011Q3

REPORT INFORMATION
  Report Type: 
  Country: None (occurrence: None)
  Receive Date: 20110809
  Receipt Date: 20110726
  Transmission Date: 20111222
  Serious: Yes (Life-Threatening, Hospitalization, Other)
  Sender: FDA-Public Use
  Company Number: US-ELI_LILLY_AND_COMPANY-US201108000747

PATIENT
  Sex: Female

DRUGS (1)
  1. FORTEO [Suspect]
     Indication: OSTEOPOROSIS
     Dosage: 20 UG, QD
     Dates: start: 20090101

REACTIONS (9)
  - RIB FRACTURE [None]
  - DYSPHONIA [None]
  - IMPAIRED HEALING [None]
  - PULSE ABSENT [None]
  - LIMB INJURY [None]
  - SPEECH DISORDER [None]
  - POOR PERIPHERAL CIRCULATION [None]
  - NAIL INJURY [None]
  - CARDIAC ARREST [None]
